FAERS Safety Report 26074793 (Version 1)
Quarter: 2025Q4

REPORT INFORMATION
  Report Type: Spontaneous
  Country: CA (occurrence: None)
  Receive Date: 20251121
  Receipt Date: 20251121
  Transmission Date: 20260117
  Serious: Yes (Hospitalization)
  Sender: ORION
  Company Number: CA-MLMSERVICE-20251113-PI711637-00043-2

PATIENT
  Age: 81 Year
  Sex: Female

DRUGS (4)
  1. METHOTREXATE [Suspect]
     Active Substance: METHOTREXATE
     Indication: Crystal arthropathy
  2. ALLOPURINOL [Suspect]
     Active Substance: ALLOPURINOL
     Indication: Crystal arthropathy
  3. HYDRALAZINE [Suspect]
     Active Substance: HYDRALAZINE HYDROCHLORIDE
     Indication: Hypertension
  4. PREDNISONE [Concomitant]
     Active Substance: PREDNISONE

REACTIONS (6)
  - Acute febrile neutrophilic dermatosis [Unknown]
  - Conjunctival oedema [Unknown]
  - Mucosal inflammation [Unknown]
  - Renal disorder [Recovered/Resolved]
  - Liver disorder [Recovered/Resolved]
  - Product use in unapproved indication [Unknown]
